FAERS Safety Report 8821635 (Version 2)
Quarter: 2012Q4

REPORT INFORMATION
  Report Type: Report from Study
  Country: KR (occurrence: KR)
  Receive Date: 20121002
  Receipt Date: 20121026
  Transmission Date: 20130627
  Serious: Yes (Hospitalization)
  Sender: FDA-Public Use
  Company Number: KR-ASTELLAS-2012JP008944

PATIENT
  Age: 74 Year
  Sex: Female

DRUGS (1)
  1. TACROLIMUS CAPSULES [Suspect]
     Indication: RHEUMATOID ARTHRITIS
     Dosage: 1.5 mg, Unknown/D
     Route: 048
     Dates: start: 20120410, end: 20120926

REACTIONS (2)
  - Lumbar vertebral fracture [Not Recovered/Not Resolved]
  - Wrist fracture [Not Recovered/Not Resolved]
